FAERS Safety Report 7648507-8 (Version None)
Quarter: 2011Q3

REPORT INFORMATION
  Report Type: 
  Country: None (occurrence: None)
  Receive Date: 20110801
  Receipt Date: 20110727
  Transmission Date: 20111222
  Serious: Yes (Other)
  Sender: FDA-Public Use
  Company Number: JP-B.I. PHARMACEUTICALS,INC./RIDGEFIELD-2011-BP-18655NB

PATIENT
  Sex: Female

DRUGS (4)
  1. FRANDOL S [Concomitant]
     Indication: ANGINA PECTORIS
     Dosage: 40 MG
     Route: 065
     Dates: start: 20091201
  2. FERROUS CITRATE [Concomitant]
     Indication: ANAEMIA
     Dosage: 100 MG
     Route: 048
     Dates: start: 20110625
  3. PRADAXA [Suspect]
     Indication: ATRIAL FIBRILLATION
     Dosage: 220 MG
     Route: 048
     Dates: start: 20110625, end: 20110723
  4. AMIODARONE HYDROCHLORIDE [Concomitant]
     Indication: ATRIAL FIBRILLATION
     Dosage: 100 MG
     Route: 048
     Dates: start: 20091201

REACTIONS (1)
  - PLATELET COUNT DECREASED [None]
